FAERS Safety Report 7421781-9 (Version None)
Quarter: 2011Q2

REPORT INFORMATION
  Report Type: 
  Country: None (occurrence: None)
  Receive Date: 20110407
  Receipt Date: 20110330
  Transmission Date: 20111010
  Serious: Yes (Death, Hospitalization)
  Sender: FDA-Public Use
  Company Number: UTC-006017

PATIENT
  Age: 1 Year
  Sex: Female

DRUGS (1)
  1. REMODULIN [Suspect]
     Indication: PULMONARY ARTERIAL HYPERTENSION
     Dosage: 20.16 UG/KG (0.014 UG/KG,1 IN 1 MIN),SUBCUTANEOUS
     Route: 058

REACTIONS (1)
  - DEATH [None]
